FAERS Safety Report 16409663 (Version 2)
Quarter: 2019Q3

REPORT INFORMATION
  Report Type: Report from Study
  Country: BR (occurrence: BR)
  Receive Date: 20190610
  Receipt Date: 20190724
  Transmission Date: 20191004
  Serious: Yes (Hospitalization, Other)
  Sender: FDA-Public Use
  Company Number: BR-JNJFOC-20180905914

PATIENT
  Age: 42 Year
  Sex: Female

DRUGS (17)
  1. STELARA [Suspect]
     Active Substance: USTEKINUMAB
     Indication: PSORIATIC ARTHROPATHY
     Dosage: WEEK: 0
     Route: 058
     Dates: start: 20180828
  2. FLUOXETINE [Concomitant]
     Active Substance: FLUOXETINE HYDROCHLORIDE
     Route: 065
  3. NORIPURUM [Concomitant]
     Active Substance: IRON POLYMALTOSE
     Indication: ANAEMIA
     Route: 065
  4. TYLEX                              /00020001/ [Concomitant]
     Active Substance: ACETAMINOPHEN
     Route: 065
  5. ALPRAZOLAM. [Concomitant]
     Active Substance: ALPRAZOLAM
     Route: 065
  6. VITAMIN D [Concomitant]
     Active Substance: VITAMIN D NOS
     Route: 065
  7. STELARA [Suspect]
     Active Substance: USTEKINUMAB
     Route: 058
     Dates: start: 201809
  8. ZOLPIDEM [Concomitant]
     Active Substance: ZOLPIDEM TARTRATE
     Route: 065
  9. ALPRAZOLAM. [Concomitant]
     Active Substance: ALPRAZOLAM
     Route: 065
  10. CARDIZEM [Concomitant]
     Active Substance: DILTIAZEM HYDROCHLORIDE
     Route: 065
  11. HYDROCHLOROTHIAZIDE. [Concomitant]
     Active Substance: HYDROCHLOROTHIAZIDE
     Route: 065
  12. VITAMIN B COMPLEX [Concomitant]
     Active Substance: CYANOCOBALAMIN\DEXPANTHENOL\NIACINAMIDE\PYRIDOXINE HYDROCHLORIDE\RIBOFLAVIN 5^-PHOSPHATE SODIUM\THIAMINE HYDROCHLORIDE\VITAMIN B COMPLEX
     Route: 065
  13. PANTOPRAZOLE [Concomitant]
     Active Substance: PANTOPRAZOLE
     Route: 065
  14. DIOVAN [Concomitant]
     Active Substance: VALSARTAN
     Route: 065
  15. BUP [Concomitant]
     Active Substance: BUPROPION HYDROCHLORIDE
     Route: 065
  16. ADDERA D3 [Concomitant]
     Active Substance: CHOLECALCIFEROL
     Route: 065
  17. CENTRUM                            /09006601/ [Concomitant]
     Route: 065

REACTIONS (12)
  - Constipation [Recovering/Resolving]
  - Hypovitaminosis [Not Recovered/Not Resolved]
  - Alopecia [Unknown]
  - Iron deficiency anaemia [Recovering/Resolving]
  - Gastritis [Unknown]
  - Weight increased [Recovering/Resolving]
  - Drug ineffective [Unknown]
  - Hypertension [Not Recovered/Not Resolved]
  - Nephrolithiasis [Unknown]
  - Hepatic steatosis [Recovering/Resolving]
  - Fluid retention [Recovered/Resolved]
  - Psoriatic arthropathy [Not Recovered/Not Resolved]

NARRATIVE: CASE EVENT DATE: 2018
